FAERS Safety Report 15462312 (Version 5)
Quarter: 2018Q4

REPORT INFORMATION
  Report Type: Spontaneous
  Country: CA (occurrence: CA)
  Receive Date: 20181004
  Receipt Date: 20181226
  Transmission Date: 20190204
  Serious: Yes (Other)
  Sender: FDA-Public Use
  Company Number: CA-ASTRAZENECA-2017SE55839

PATIENT
  Age: 44 Year
  Sex: Female
  Weight: 63 kg

DRUGS (44)
  1. HUMIRA [Suspect]
     Active Substance: ADALIMUMAB
     Indication: DRUG THERAPY
     Dosage: 40.0MG UNKNOWN
     Route: 058
     Dates: start: 201008, end: 201312
  2. IMURAN [Suspect]
     Active Substance: AZATHIOPRINE
     Dosage: 150.0MG UNKNOWN
     Route: 065
  3. LYRICA [Suspect]
     Active Substance: PREGABALIN
     Indication: RHEUMATOID ARTHRITIS
     Route: 048
  4. RATIO-OXYCOCET [Suspect]
     Active Substance: ACETAMINOPHEN\OXYCODONE HYDROCHLORIDE
     Dosage: DOSE UNKNOWN
     Route: 065
  5. SEPTRA [Suspect]
     Active Substance: SULFAMETHOXAZOLE\TRIMETHOPRIM
     Dosage: UNKNOWN DOSE
     Route: 065
     Dates: start: 20071221, end: 20180211
  6. SULFASALAZINE. [Suspect]
     Active Substance: SULFASALAZINE
     Indication: RHEUMATOID ARTHRITIS
     Route: 048
  7. TOFACITINIB [Suspect]
     Active Substance: TOFACITINIB
     Indication: RHEUMATOID ARTHRITIS
     Dosage: TOFACITINIB CITRATE, 5 MG TWO TIMES DAILY
     Route: 048
     Dates: end: 20140927
  8. APO AMITRIPTYLINE [Suspect]
     Active Substance: AMITRIPTYLINE
     Route: 048
  9. ACETAMINOPHEN W/OXYCODONE HYDROCHLORIDE [Suspect]
     Active Substance: ACETAMINOPHEN\OXYCODONE HYDROCHLORIDE
     Route: 065
  10. CELEBREX [Concomitant]
     Active Substance: CELECOXIB
     Indication: PRODUCT USED FOR UNKNOWN INDICATION
  11. PANTOLOC [Suspect]
     Active Substance: PANTOPRAZOLE SODIUM
     Dosage: DAILY
     Route: 048
  12. ALENDRONIC ACID [Suspect]
     Active Substance: ALENDRONIC ACID
     Dosage: UNKNOWN DOSE
     Route: 065
  13. LYRICA [Suspect]
     Active Substance: PREGABALIN
     Indication: RHEUMATOID ARTHRITIS
     Route: 048
  14. RANITIDINE. [Suspect]
     Active Substance: RANITIDINE
     Route: 048
     Dates: start: 2012
  15. APO-PREDNISONE [Suspect]
     Active Substance: PREDNISONE
     Route: 065
  16. TEVA-OXYCOCET [Suspect]
     Active Substance: ACETAMINOPHEN\OXYCODONE HYDROCHLORIDE
     Route: 065
  17. APO-ALENDRONATE [Suspect]
     Active Substance: ALENDRONATE SODIUM
     Route: 065
  18. NAPROXEN. [Suspect]
     Active Substance: NAPROXEN
     Route: 048
  19. NAPROXEN. [Suspect]
     Active Substance: NAPROXEN
     Route: 048
  20. APO-NAPROXEN [Suspect]
     Active Substance: NAPROXEN
     Route: 048
  21. FOLIC ACID. [Concomitant]
     Active Substance: FOLIC ACID
  22. VIMOVO [Suspect]
     Active Substance: ESOMEPRAZOLE MAGNESIUM\NAPROXEN
     Dosage: UNKNOWN DOSE
     Route: 048
  23. ESOMEPRAZOLE MAGNESIUM. [Suspect]
     Active Substance: ESOMEPRAZOLE MAGNESIUM
     Route: 048
  24. METHOTREXATE. [Suspect]
     Active Substance: METHOTREXATE
     Indication: RHEUMATOID ARTHRITIS
     Route: 048
     Dates: start: 2007, end: 2008
  25. METHOTREXATE. [Suspect]
     Active Substance: METHOTREXATE
     Indication: RHEUMATOID ARTHRITIS
     Route: 058
     Dates: start: 2008
  26. DEPO-MEDROL [Suspect]
     Active Substance: METHYLPREDNISOLONE ACETATE
     Indication: RHEUMATOID ARTHRITIS
     Dosage: DAILY
     Route: 014
  27. MELOXICAM. [Suspect]
     Active Substance: MELOXICAM
     Route: 065
  28. PREDNISONE. [Suspect]
     Active Substance: PREDNISONE
     Indication: RHEUMATOID ARTHRITIS
     Route: 065
  29. PREDNISONE. [Suspect]
     Active Substance: PREDNISONE
     Indication: RHEUMATOID ARTHRITIS
     Route: 065
     Dates: start: 2012
  30. BACTRIM [Suspect]
     Active Substance: SULFAMETHOXAZOLE\TRIMETHOPRIM
     Route: 065
  31. NAPROXEN. [Suspect]
     Active Substance: NAPROXEN
     Route: 048
     Dates: start: 2011
  32. RANITIDINE. [Suspect]
     Active Substance: RANITIDINE
     Route: 048
  33. APO-NAPROXEN [Suspect]
     Active Substance: NAPROXEN
     Route: 048
  34. APO RANITIDINE [Suspect]
     Active Substance: RANITIDINE
     Route: 048
  35. PLAQUENIL [Concomitant]
     Active Substance: HYDROXYCHLOROQUINE SULFATE
  36. ENBREL [Suspect]
     Active Substance: ETANERCEPT
     Indication: RHEUMATOID ARTHRITIS
     Route: 058
     Dates: start: 200812, end: 201807
  37. SULFASALAZINE. [Suspect]
     Active Substance: SULFASALAZINE
     Indication: RHEUMATOID ARTHRITIS
     Route: 048
     Dates: start: 20071221, end: 20080211
  38. TOFACITINIB [Suspect]
     Active Substance: TOFACITINIB
     Indication: RHEUMATOID ARTHRITIS
     Route: 048
  39. NAPROXEN. [Suspect]
     Active Substance: NAPROXEN
     Route: 048
  40. NAPROXEN. [Suspect]
     Active Substance: NAPROXEN
     Dosage: 250.0MG UNKNOWN
     Route: 048
  41. ENBREL [Suspect]
     Active Substance: ETANERCEPT
     Indication: RHEUMATOID ARTHRITIS
     Route: 058
     Dates: start: 200812, end: 201007
  42. AMITRIPTYLINE HYDROCHLORIDE. [Suspect]
     Active Substance: AMITRIPTYLINE HYDROCHLORIDE
     Route: 048
     Dates: start: 2011
  43. TOFACITINIB [Suspect]
     Active Substance: TOFACITINIB
     Indication: RHEUMATOID ARTHRITIS
     Dosage: TOFACITINIB CITRATE, 10 MG DAILY
     Route: 048
  44. ACETAMINOPHEN W/OXYCODONE HYDROCHLORIDE [Suspect]
     Active Substance: ACETAMINOPHEN\OXYCODONE HYDROCHLORIDE
     Route: 065

REACTIONS (42)
  - Flank pain [Unknown]
  - Impaired work ability [Unknown]
  - Interstitial lung disease [Unknown]
  - Joint effusion [Unknown]
  - Lung disorder [Unknown]
  - Dry mouth [Unknown]
  - Bursitis [Unknown]
  - Synovial cyst [Unknown]
  - Synovial fluid analysis [Unknown]
  - Pain [Unknown]
  - Pneumonia [Unknown]
  - Thrombosis [Unknown]
  - Conjunctivitis [Unknown]
  - Dry eye [Unknown]
  - Pleuritic pain [Unknown]
  - Tenderness [Unknown]
  - Infection [Unknown]
  - Rash [Unknown]
  - Drug effect decreased [Unknown]
  - Ulcer [Unknown]
  - Tenosynovitis stenosans [Unknown]
  - Eye pain [Unknown]
  - Red blood cell count decreased [Unknown]
  - Nodule [Unknown]
  - Malaise [Unknown]
  - Musculoskeletal stiffness [Unknown]
  - Neoplasm malignant [Unknown]
  - Visual impairment [Unknown]
  - Nausea [Unknown]
  - Antinuclear antibody positive [Unknown]
  - Fibromyalgia [Unknown]
  - Feeling jittery [Unknown]
  - Rheumatoid arthritis [Unknown]
  - Cushingoid [Unknown]
  - Photophobia [Unknown]
  - Contraindicated product administered [Unknown]
  - Atelectasis [Unknown]
  - Rheumatoid nodule [Unknown]
  - Scleritis [Unknown]
  - Wheezing [Unknown]
  - Crepitations [Unknown]
  - Pruritus [Unknown]

NARRATIVE: CASE EVENT DATE: 2008
